FAERS Safety Report 7438530-0 (Version None)
Quarter: 2011Q2

REPORT INFORMATION
  Report Type: 
  Country: None (occurrence: None)
  Receive Date: 20110426
  Receipt Date: 20110414
  Transmission Date: 20111010
  Serious: Yes (Other)
  Sender: FDA-Public Use
  Company Number: US-SANOFI-AVENTIS-2011SA023710

PATIENT
  Age: 70 Year
  Sex: Male

DRUGS (6)
  1. JANUVIA [Concomitant]
     Route: 065
  2. SOLOSTAR [Suspect]
     Dates: start: 20060101
  3. GLYBURIDE [Concomitant]
     Route: 065
  4. LANTUS [Suspect]
     Indication: TYPE 2 DIABETES MELLITUS
     Dosage: 60-70 UNITS
     Route: 058
     Dates: start: 20060101
  5. METFORMIN [Concomitant]
     Route: 065
  6. NOVOLOG [Concomitant]
     Dosage: 4UNITS AT BREAKFAST, 6 UNITS AT LUNCH AND 8 UNITS AT SUPPER
     Route: 065

REACTIONS (3)
  - SKIN ULCER [None]
  - VASCULAR GRAFT [None]
  - FOOT AMPUTATION [None]
